FAERS Safety Report 9384196 (Version 1)
Quarter: 2013Q3

REPORT INFORMATION
  Report Type: Spontaneous
  Country: US (occurrence: None)
  Receive Date: 20130702
  Receipt Date: 20130702
  Transmission Date: 20140515
  Serious: Yes (Other)
  Sender: FDA-Public Use
  Company Number: None

PATIENT
  Age: 65 Year
  Sex: Female
  Weight: 76.66 kg

DRUGS (14)
  1. ESTRING [Suspect]
     Indication: VULVOVAGINAL DRYNESS
     Dosage: STRENGTH:  2 MG?QUANTITY:  1 RING?FREQUENCY:  DAILY/DISCARD AFTER 90 DAYS ?HOW:  VAGINALLY?
     Route: 067
     Dates: start: 20121204, end: 20130115
  2. GAPAPENTIN [Concomitant]
  3. TIZANIDINE [Concomitant]
  4. TRAZODONE [Concomitant]
  5. AMLODIPINE [Concomitant]
  6. METFORMIN [Concomitant]
  7. HYDROCHLOROTHIAZIDE [Concomitant]
  8. ATORVASTATIN [Concomitant]
  9. FISH OIL [Concomitant]
  10. VITAMIN B12 [Concomitant]
  11. CAL-MAG-ZINC [Concomitant]
  12. D3 2000 [Concomitant]
  13. NAPROXEN [Concomitant]
  14. FIBER PILLS [Concomitant]

REACTIONS (4)
  - Nausea [None]
  - Vomiting [None]
  - Abdominal pain upper [None]
  - Gait disturbance [None]
